FAERS Safety Report 5226699-8 (Version None)
Quarter: 2007Q1

REPORT INFORMATION
  Report Type: 
  Country: None (occurrence: None)
  Receive Date: 20070201
  Receipt Date: 20070122
  Transmission Date: 20070707
  Serious: Yes (Life-Threatening, Other)
  Sender: FDA-Public Use
  Company Number: NL-ABBOTT-07P-114-0354806-00

PATIENT
  Age: 65 Year
  Sex: Female

DRUGS (8)
  1. SEVOFLURANE [Suspect]
     Indication: ANAESTHESIA
     Dosage: 2%
     Route: 055
  2. NITROUS OXIDE W/ OXYGEN [Concomitant]
     Indication: ANAESTHESIA
     Dosage: 50:50 WITH OXYGEN
     Route: 055
  3. ATROPINE [Concomitant]
     Indication: PREMEDICATION
     Route: 030
  4. HYDROXYZINE [Concomitant]
     Indication: PREMEDICATION
     Route: 030
  5. THIOPENTAL SODIUM [Concomitant]
     Indication: ANAESTHESIA
     Dosage: 4MG/KG
     Route: 042
  6. VECURONIUM BROMIDE [Concomitant]
     Indication: ANAESTHESIA
     Route: 042
  7. OXYGEN [Concomitant]
     Indication: ANAESTHESIA
     Route: 055
  8. DISOPYRAMIDE [Concomitant]
     Indication: ATRIAL FIBRILLATION
     Route: 042

REACTIONS (3)
  - TORSADE DE POINTES [None]
  - VENTRICULAR FIBRILLATION [None]
  - VENTRICULAR TACHYCARDIA [None]
